FAERS Safety Report 9840947 (Version 1)
Quarter: 2014Q1

REPORT INFORMATION
  Report Type: Spontaneous
  Country: US (occurrence: US)
  Receive Date: 20140124
  Receipt Date: 20140124
  Transmission Date: 20141002
  Serious: Yes (Other)
  Sender: FDA-Public Use
  Company Number: US-ELI_LILLY_AND_COMPANY-US201401005100

PATIENT
  Sex: Female

DRUGS (4)
  1. CYMBALTA [Suspect]
     Indication: FIBROMYALGIA
     Dosage: 30 MG, QD
     Route: 065
     Dates: start: 201301, end: 201302
  2. CYMBALTA [Suspect]
     Dosage: 60 MG, QD
     Route: 065
     Dates: start: 201302, end: 201307
  3. SAVELLA [Concomitant]
     Indication: PRODUCT USED FOR UNKNOWN INDICATION
     Dosage: 1 DF, UNKNOWN
     Route: 065
     Dates: start: 201309
  4. GABAPENTIN [Concomitant]
     Indication: PRODUCT USED FOR UNKNOWN INDICATION
     Dosage: 1 DF, UNKNOWN
     Route: 065

REACTIONS (2)
  - Blister [Unknown]
  - Hepatic enzyme increased [Unknown]
